FAERS Safety Report 9731663 (Version 1)
Quarter: 2013Q4

REPORT INFORMATION
  Report Type: Spontaneous
  Country: US (occurrence: None)
  Receive Date: 20131204
  Receipt Date: 20131204
  Transmission Date: 20140711
  Serious: No
  Sender: FDA-Public Use
  Company Number: None

PATIENT
  Age: 60 Year
  Sex: Male
  Weight: 68.04 kg

DRUGS (3)
  1. CIPROFLOXACIN [Suspect]
     Indication: BRONCHITIS
     Dosage: 20 PILLS 1 TWICE DAILY
     Route: 048
     Dates: start: 20131118, end: 20131124
  2. CIPROFLOXACIN [Suspect]
     Indication: SINUSITIS
     Dosage: 20 PILLS 1 TWICE DAILY
     Route: 048
     Dates: start: 20131118, end: 20131124
  3. MUCINEX [Concomitant]

REACTIONS (5)
  - Nervousness [None]
  - Disorientation [None]
  - Fear [None]
  - Feeling abnormal [None]
  - Abnormal dreams [None]
